FAERS Safety Report 15653893 (Version 2)
Quarter: 2019Q1

REPORT INFORMATION
  Report Type: Spontaneous
  Country: US (occurrence: US)
  Receive Date: 20181124
  Receipt Date: 20190114
  Transmission Date: 20190417
  Serious: No
  Sender: FDA-Public Use
  Company Number: US-JNJFOC-20181113630

PATIENT
  Age: 54 Year
  Sex: Female
  Weight: 77.11 kg

DRUGS (2)
  1. OTEZLA [Concomitant]
     Active Substance: APREMILAST
     Route: 065
  2. TREMFYA [Suspect]
     Active Substance: GUSELKUMAB
     Indication: PSORIATIC ARTHROPATHY
     Route: 058
     Dates: start: 201807

REACTIONS (5)
  - Off label use [Unknown]
  - Product dose omission [Unknown]
  - Product use in unapproved indication [Unknown]
  - Drug ineffective [Not Recovered/Not Resolved]
  - Syringe issue [Unknown]

NARRATIVE: CASE EVENT DATE: 201807
